FAERS Safety Report 10451186 (Version 3)
Quarter: 2014Q4

REPORT INFORMATION
  Report Type: Spontaneous
  Country: US (occurrence: US)
  Receive Date: 20140912
  Receipt Date: 20141218
  Transmission Date: 20150528
  Serious: No
  Sender: FDA-Public Use
  Company Number: US-GALDERMA-US14002784

PATIENT
  Age: 25 Year
  Sex: Male

DRUGS (4)
  1. MIRVASO [Suspect]
     Active Substance: BRIMONIDINE TARTRATE
     Indication: ROSACEA
     Dosage: 0.33%
     Route: 061
     Dates: start: 20140717, end: 20140717
  2. EUCERIN HEAVY MOISTURIZER [Concomitant]
     Indication: DRY SKIN PROPHYLAXIS
     Route: 061
  3. MIRVASO [Suspect]
     Active Substance: BRIMONIDINE TARTRATE
     Indication: ROSACEA
     Dosage: 0.33%
     Route: 061
     Dates: start: 20140704, end: 20140716
  4. PROMISE B [Concomitant]
     Indication: SEBORRHOEIC DERMATITIS
     Dates: start: 20140704, end: 20140706

REACTIONS (13)
  - Inappropriate schedule of drug administration [Recovered/Resolved]
  - Skin exfoliation [Recovered/Resolved]
  - Erythema [Recovered/Resolved]
  - Condition aggravated [Recovered/Resolved]
  - Vascular skin disorder [Recovered/Resolved]
  - Emotional distress [Recovered/Resolved]
  - Discomfort [Recovered/Resolved]
  - Skin burning sensation [Recovered/Resolved]
  - General physical condition abnormal [Recovered/Resolved]
  - Rash macular [Recovered/Resolved]
  - Pruritus [Recovered/Resolved]
  - Drug effect decreased [Recovered/Resolved]
  - Skin discomfort [Recovered/Resolved]

NARRATIVE: CASE EVENT DATE: 201407
